FAERS Safety Report 11455402 (Version 2)
Quarter: 2015Q3

REPORT INFORMATION
  Report Type: Spontaneous
  Country: CH (occurrence: CH)
  Receive Date: 20150903
  Receipt Date: 20150909
  Transmission Date: 20151125
  Serious: Yes (Death, Hospitalization)
  Sender: FDA-Public Use
  Company Number: CH-ELI_LILLY_AND_COMPANY-CH201509000461

PATIENT
  Age: 44 Year
  Sex: Male

DRUGS (3)
  1. GRANULOCYTE COLONY STIMULATING FACTOR [Concomitant]
     Active Substance: GRANULOCYTE COLONY-STIMULATING FACTOR NOS
  2. DOXORUBICIN HCL [Suspect]
     Active Substance: DOXORUBICIN HYDROCHLORIDE
     Indication: RENAL CELL CARCINOMA
     Dosage: 50 MG/M2, EVERY 2 WEEKS
     Route: 065
     Dates: start: 20131216, end: 201404
  3. GEMZAR [Suspect]
     Active Substance: GEMCITABINE HYDROCHLORIDE
     Indication: RENAL CELL CARCINOMA
     Dosage: 1500 MG/M2, EVERY 2 WEEKS
     Route: 065
     Dates: start: 20131216, end: 201404

REACTIONS (3)
  - Malignant neoplasm progression [Fatal]
  - Off label use [Recovered/Resolved]
  - Weight decreased [Unknown]

NARRATIVE: CASE EVENT DATE: 2014
